FAERS Safety Report 11700155 (Version 1)
Quarter: 2015Q4

REPORT INFORMATION
  Report Type: Spontaneous
  Country: US (occurrence: US)
  Receive Date: 20151105
  Receipt Date: 20151105
  Transmission Date: 20160304
  Serious: No
  Sender: FDA-Public Use
  Company Number: US-ASTRAZENECA-2015SF01654

PATIENT
  Age: 73 Year
  Sex: Female
  Weight: 63 kg

DRUGS (13)
  1. BYETTA [Suspect]
     Active Substance: EXENATIDE
     Indication: TYPE 2 DIABETES MELLITUS
     Route: 058
  2. BUFFERED ASPIRIN [Concomitant]
     Active Substance: ASPIRIN
  3. LUTEIN [Concomitant]
     Active Substance: LUTEIN
     Indication: EYE DISORDER
  4. ESTER C [Concomitant]
  5. VITAMIN D [Concomitant]
     Active Substance: CHOLECALCIFEROL
  6. VAGIFEM [Concomitant]
     Active Substance: ESTRADIOL
  7. VITAMIN B6 [Concomitant]
     Active Substance: PYRIDOXINE HYDROCHLORIDE
  8. VITAMIN B12 [Concomitant]
     Active Substance: CYANOCOBALAMIN
  9. METFORMIN [Concomitant]
     Active Substance: METFORMIN HYDROCHLORIDE
  10. FARXIGA [Suspect]
     Active Substance: DAPAGLIFLOZIN PROPANEDIOL
     Indication: TYPE 2 DIABETES MELLITUS
     Route: 048
  11. BIOTIN [Concomitant]
     Active Substance: BIOTIN
  12. UBIQUINOL COQ [Concomitant]
     Dosage: 10 200 MG BID
  13. FISH OIL [Concomitant]
     Active Substance: FISH OIL

REACTIONS (11)
  - Angular cheilitis [Unknown]
  - Haemorrhoids [Unknown]
  - Acne [Unknown]
  - Skin discolouration [Unknown]
  - Rosacea [Unknown]
  - Vertigo [Unknown]
  - Flatulence [Unknown]
  - Blood glucose increased [Unknown]
  - Vulvovaginal burning sensation [Unknown]
  - Drug hypersensitivity [Unknown]
  - Intentional product misuse [Unknown]
